FAERS Safety Report 12365626 (Version 1)
Quarter: 2016Q2

REPORT INFORMATION
  Report Type: Spontaneous
  Country: US (occurrence: None)
  Receive Date: 20160512
  Receipt Date: 20160512
  Transmission Date: 20160815
  Serious: Yes (Disabling)
  Sender: FDA-Public Use
  Company Number: None

PATIENT
  Age: 94 Year
  Sex: Male
  Weight: 72.58 kg

DRUGS (1)
  1. CIPROFLOXACIN, 500MG [Suspect]
     Active Substance: CIPROFLOXACIN
     Indication: URINARY TRACT INFECTION
     Route: 048
     Dates: start: 20151217, end: 20151227

REACTIONS (4)
  - Pain in extremity [None]
  - Middle insomnia [None]
  - Musculoskeletal pain [None]
  - Hand deformity [None]

NARRATIVE: CASE EVENT DATE: 20151217
